FAERS Safety Report 22793611 (Version 2)
Quarter: 2024Q1

REPORT INFORMATION
  Report Type: Spontaneous
  Country: GB (occurrence: GB)
  Receive Date: 20230807
  Receipt Date: 20240110
  Transmission Date: 20240409
  Serious: Yes (Hospitalization)
  Sender: FDA-Public Use
  Company Number: GB-VERTEX PHARMACEUTICALS-2023-011030

PATIENT
  Sex: Female
  Weight: 79 kg

DRUGS (2)
  1. ELEXACAFTOR\IVACAFTOR\TEZACAFTOR [Suspect]
     Active Substance: ELEXACAFTOR\IVACAFTOR\TEZACAFTOR
     Indication: Cystic fibrosis
     Dosage: 2 TABS (75MG IVACAFTOR/50MG TEZACAFTOR/100MG ELEXACAFTOR) IN MORNING
     Route: 048
     Dates: start: 20210506
  2. KALYDECO [Suspect]
     Active Substance: IVACAFTOR
     Indication: Cystic fibrosis
     Dosage: 1 TAB IN THE EVENING
     Route: 048
     Dates: start: 20210506

REACTIONS (10)
  - COVID-19 pneumonia [Recovered/Resolved]
  - Enterobacter test positive [Recovered/Resolved]
  - Pseudomonas test positive [Recovered/Resolved]
  - Candida test positive [Recovered/Resolved]
  - Constipation [Recovered/Resolved]
  - Blood cholesterol increased [Recovered/Resolved]
  - Blood triglycerides increased [Recovered/Resolved]
  - Infective pulmonary exacerbation of cystic fibrosis [Recovered/Resolved]
  - Seronegative arthritis [Recovered/Resolved]
  - Rash [Recovered/Resolved]

NARRATIVE: CASE EVENT DATE: 20230101
